FAERS Safety Report 5618661-8 (Version None)
Quarter: 2008Q1

REPORT INFORMATION
  Report Type: 
  Country: None (occurrence: None)
  Receive Date: 20080205
  Receipt Date: 20080205
  Transmission Date: 20080703
  Serious: Yes (Other)
  Sender: FDA-Public Use
  Company Number: None

PATIENT
  Age: 54 Year
  Sex: Female
  Weight: 49.8957 kg

DRUGS (3)
  1. CLORAZEPATE 7.5 RANBAXY [Suspect]
     Indication: ASTHMA
     Dosage: ONE DAILY PO
     Route: 048
     Dates: start: 20080105, end: 20080123
  2. CLORAZEPATE 7.5 RANBAXY [Suspect]
     Indication: CARDIAC DISORDER
     Dosage: ONE DAILY PO
     Route: 048
     Dates: start: 20080105, end: 20080123
  3. CLORAZEPATE 7.5 RANBAXY [Suspect]
     Indication: MUSCLE SPASMS
     Dosage: ONE DAILY PO
     Route: 048
     Dates: start: 20080105, end: 20080123

REACTIONS (5)
  - CHEST PAIN [None]
  - DRY MOUTH [None]
  - DYSPNOEA [None]
  - MUSCLE SPASMS [None]
  - NERVOUSNESS [None]
